FAERS Safety Report 6195930-7 (Version None)
Quarter: 2009Q2

REPORT INFORMATION
  Report Type: 
  Country: None (occurrence: None)
  Receive Date: 20090515
  Receipt Date: 20090508
  Transmission Date: 20091009
  Serious: Yes (Other)
  Sender: FDA-Public Use
  Company Number: CHPA2009US11158

PATIENT
  Age: 24 Year
  Sex: Female

DRUGS (1)
  1. EXCEDRIN (MIGRAINE) [Suspect]
     Dosage: 2 DF, ONCE/SINGLE, ORAL
     Route: 048
     Dates: start: 20090502, end: 20090502

REACTIONS (7)
  - AURICULAR SWELLING [None]
  - LOCAL SWELLING [None]
  - OEDEMA MOUTH [None]
  - OEDEMA PERIPHERAL [None]
  - ORAL DISORDER [None]
  - SWELLING [None]
  - SWELLING FACE [None]
